FAERS Safety Report 9663309 (Version 2)
Quarter: 2013Q4

REPORT INFORMATION
  Report Type: Spontaneous
  Country: SG (occurrence: SG)
  Receive Date: 20131101
  Receipt Date: 20131125
  Transmission Date: 20140711
  Serious: No
  Sender: FDA-Public Use
  Company Number: SG-009507513-1310SGP014509

PATIENT
  Age: 50 Year
  Sex: Female

DRUGS (1)
  1. JANUMET TABLET 50MG/850MG [Suspect]
     Indication: DIABETES MELLITUS
     Dosage: UNK
     Route: 048
     Dates: start: 201309

REACTIONS (2)
  - Gastrointestinal disorder [Recovered/Resolved]
  - Depressed mood [Recovered/Resolved]
